FAERS Safety Report 9842320 (Version 3)
Quarter: 2014Q3

REPORT INFORMATION
  Report Type: Report from Study
  Country: AR (occurrence: AR)
  Receive Date: 20140124
  Receipt Date: 20140827
  Transmission Date: 20150326
  Serious: Yes (Hospitalization, Other)
  Sender: FDA-Public Use
  Company Number: PHHY2014AR008874

PATIENT
  Age: 76 Year
  Sex: Female

DRUGS (4)
  1. DIOVAN [Suspect]
     Active Substance: VALSARTAN
     Dosage: 0.5 DF (UKN), UNK
     Route: 048
     Dates: end: 2013
  2. DIOVAN [Suspect]
     Active Substance: VALSARTAN
     Indication: HYPERTENSION
     Dosage: 160 MG, UNK
     Route: 048
     Dates: start: 200809, end: 201109
  3. DIOVAN [Suspect]
     Active Substance: VALSARTAN
     Dosage: 320 MG, UNK
     Route: 048
     Dates: start: 201110
  4. DIOVAN [Suspect]
     Active Substance: VALSARTAN
     Dosage: 80 MG, DAILY
     Route: 048
     Dates: start: 201309, end: 201312

REACTIONS (8)
  - Bladder cancer [Recovered/Resolved]
  - Oedema peripheral [Recovering/Resolving]
  - Dizziness [Unknown]
  - Wrong technique in drug usage process [Recovered/Resolved]
  - Asthenia [Unknown]
  - Cardiac hypertrophy [Recovered/Resolved]
  - Blood pressure decreased [Recovered/Resolved]
  - Heart rate decreased [Recovered/Resolved]

NARRATIVE: CASE EVENT DATE: 2012
